FAERS Safety Report 7796610-4 (Version None)
Quarter: 2011Q4

REPORT INFORMATION
  Report Type: 
  Country: None (occurrence: None)
  Receive Date: 20111005
  Receipt Date: 20110922
  Transmission Date: 20120403
  Serious: Yes (Hospitalization)
  Sender: FDA-Public Use
  Company Number: JP-ELI_LILLY_AND_COMPANY-JP201108000452

PATIENT
  Sex: Female

DRUGS (6)
  1. ZYPREXA [Suspect]
     Dosage: 7.0 MG, QD
     Route: 048
     Dates: start: 20110715, end: 20110728
  2. ZYPREXA [Suspect]
     Dosage: 5.0 MG, QD
     Route: 048
     Dates: start: 20110711, end: 20110714
  3. PROPYLTHIOURACIL [Concomitant]
     Dosage: 100 MG, TID
     Route: 048
     Dates: start: 20110613
  4. ZYPREXA [Suspect]
     Indication: HALLUCINATION
     Dosage: 2.5 MG, QD
     Route: 048
     Dates: start: 20110708, end: 20110710
  5. ZYPREXA [Suspect]
     Dosage: 2.5 MG, QD
     Route: 048
     Dates: start: 20110729, end: 20110731
  6. CONIEL [Concomitant]
     Dosage: 2 MG, QD
     Route: 048
     Dates: start: 20110613

REACTIONS (2)
  - NEUROLEPTIC MALIGNANT SYNDROME [None]
  - OFF LABEL USE [None]
